FAERS Safety Report 9429604 (Version 1)
Quarter: 2013Q3

REPORT INFORMATION
  Report Type: Report from Study
  Country: US (occurrence: US)
  Receive Date: 20130730
  Receipt Date: 20130730
  Transmission Date: 20140515
  Serious: No
  Sender: FDA-Public Use
  Company Number: US-ABBOTT-13P-163-1066380-00

PATIENT
  Age: 67 Year
  Sex: Female
  Weight: 113.5 kg

DRUGS (13)
  1. NIASPAN (COATED) [Suspect]
     Indication: HIGH DENSITY LIPOPROTEIN DECREASED
     Route: 048
     Dates: start: 20130316
  2. NIASPAN (COATED) [Suspect]
     Indication: BLOOD CHOLESTEROL INCREASED
  3. METOPROLOL [Concomitant]
     Indication: HYPERTENSION
  4. LOSARTAN [Concomitant]
     Indication: HYPERTENSION
  5. METFORMIN [Concomitant]
     Indication: DIABETES MELLITUS
  6. PRAVASTATIN [Concomitant]
     Indication: BLOOD CHOLESTEROL INCREASED
  7. OMEPRAZOLE [Concomitant]
     Indication: GASTROOESOPHAGEAL REFLUX DISEASE
  8. ASA [Concomitant]
     Indication: CARDIOVASCULAR EVENT PROPHYLAXIS
  9. CALCIUM +D [Concomitant]
     Indication: VITAMIN SUPPLEMENTATION
  10. CENTRUM SILVER [Concomitant]
     Indication: VITAMIN SUPPLEMENTATION
  11. EXTRA STRENGTH PAIN RELIEVER PM [Concomitant]
     Indication: PRODUCT USED FOR UNKNOWN INDICATION
  12. ACETAMINOPHEN PM [Concomitant]
     Indication: PRODUCT USED FOR UNKNOWN INDICATION
  13. TIMOLOL [Concomitant]
     Indication: GLAUCOMA
     Dosage: EACH EYE

REACTIONS (1)
  - Back pain [Recovered/Resolved]
